FAERS Safety Report 5741387-7 (Version None)
Quarter: 2008Q2

REPORT INFORMATION
  Report Type: 
  Country: None (occurrence: None)
  Receive Date: 20080514
  Receipt Date: 20080429
  Transmission Date: 20081010
  Serious: Yes (Other)
  Sender: FDA-Public Use
  Company Number: 8029810

PATIENT
  Age: 48 Year
  Sex: Female

DRUGS (3)
  1. KEPPRA [Suspect]
     Dosage: 375 MG 2/D
     Dates: start: 20080124
  2. LAMOTRIGINE [Suspect]
     Dosage: 50 MG 2/D
  3. DESITIN /00263601/ [Concomitant]

REACTIONS (5)
  - ANOREXIA [None]
  - CHILLS [None]
  - DISORIENTATION [None]
  - FATIGUE [None]
  - PYREXIA [None]
